FAERS Safety Report 6139414-0 (Version None)
Quarter: 2009Q2

REPORT INFORMATION
  Report Type: 
  Country: None (occurrence: None)
  Receive Date: 20090401
  Receipt Date: 20090325
  Transmission Date: 20091009
  Serious: Yes (Other)
  Sender: FDA-Public Use
  Company Number: GB-ROCHE-624260

PATIENT
  Sex: Male
  Weight: 95.3 kg

DRUGS (4)
  1. ORLISTAT [Suspect]
     Indication: OBESITY
     Route: 048
     Dates: start: 20080910, end: 20090110
  2. SOLPADOL [Concomitant]
     Indication: PAIN
     Dosage: DOSE AS : 30/500 AS AND WHEN
     Route: 048
  3. PRAVASTATIN [Concomitant]
     Route: 048
  4. DEXAMETHASONE TAB [Concomitant]
     Route: 048

REACTIONS (1)
  - BONE NEOPLASM MALIGNANT [None]
